FAERS Safety Report 7289447-6 (Version None)
Quarter: 2011Q1

REPORT INFORMATION
  Report Type: 
  Country: None (occurrence: None)
  Receive Date: 20110211
  Receipt Date: 20110201
  Transmission Date: 20110831
  Serious: Yes (Other)
  Sender: FDA-Public Use
  Company Number: JP-BAYER-2011-010580

PATIENT
  Age: 80 Year
  Sex: Male

DRUGS (1)
  1. AVELOX [Suspect]
     Indication: CHRONIC OBSTRUCTIVE PULMONARY DISEASE
     Dosage: 400 MG, QD
     Route: 048
     Dates: start: 20110122, end: 20110129

REACTIONS (1)
  - HYPOGLYCAEMIA [None]
